FAERS Safety Report 13121254 (Version 1)
Quarter: 2017Q1

REPORT INFORMATION
  Report Type: Spontaneous
  Country: FR (occurrence: FR)
  Receive Date: 20170117
  Receipt Date: 20170117
  Transmission Date: 20170428
  Serious: Yes (Hospitalization)
  Sender: FDA-Public Use
  Company Number: FR-PFIZER INC-2017012719

PATIENT
  Age: 40 Year
  Sex: Male

DRUGS (4)
  1. ARTANE [Suspect]
     Active Substance: TRIHEXYPHENIDYL HYDROCHLORIDE
     Dosage: 15 MG, 1X/DAY
     Route: 048
     Dates: start: 20161021, end: 20161021
  2. NORSET [Concomitant]
     Active Substance: MIRTAZAPINE
     Indication: DEPRESSION
     Dosage: 15 MG, 2X/DAY
     Route: 048
  3. SERESTA [Suspect]
     Active Substance: OXAZEPAM
     Indication: ANXIETY
     Dosage: 200 MG, 1X/DAY
     Route: 048
     Dates: start: 20161021, end: 20161021
  4. XANAX [Suspect]
     Active Substance: ALPRAZOLAM
     Indication: ANXIETY
     Dosage: UNK,
     Route: 048
     Dates: start: 20161021, end: 20161021

REACTIONS (4)
  - Hallucination, auditory [Recovered/Resolved]
  - Toxicity to various agents [Recovered/Resolved]
  - Psychotic disorder [Recovered/Resolved with Sequelae]
  - Abnormal behaviour [Recovered/Resolved]

NARRATIVE: CASE EVENT DATE: 20161021
